FAERS Safety Report 10695073 (Version 1)
Quarter: 2015Q1

REPORT INFORMATION
  Report Type: Spontaneous
  Country: US (occurrence: None)
  Receive Date: 20150106
  Receipt Date: 20150106
  Transmission Date: 20150721
  Serious: Yes (Hospitalization)
  Sender: FDA-Public Use
  Company Number: None

PATIENT
  Age: 83 Year
  Sex: Male
  Weight: 88.2 kg

DRUGS (1)
  1. SUNITINIB MALATE (SU011248 L-MALATE) [Suspect]
     Active Substance: SUNITINIB MALATE
     Dates: end: 20141226

REACTIONS (9)
  - Acute kidney injury [None]
  - Anaemia [None]
  - Gastric ulcer [None]
  - Asthenia [None]
  - Occult blood positive [None]
  - Vomiting [None]
  - Diarrhoea [None]
  - Nausea [None]
  - Gastrointestinal haemorrhage [None]

NARRATIVE: CASE EVENT DATE: 20141222
